FAERS Safety Report 19264632 (Version 4)
Quarter: 2021Q3

REPORT INFORMATION
  Report Type: Report from Study
  Country: US (occurrence: US)
  Receive Date: 20210517
  Receipt Date: 20210824
  Transmission Date: 20211014
  Serious: No
  Sender: FDA-Public Use
  Company Number: US-GLAXOSMITHKLINE-US2021AMR060405

PATIENT
  Sex: Male

DRUGS (1)
  1. BELANTAMAB MAFODOTIN. [Suspect]
     Active Substance: BELANTAMAB MAFODOTIN
     Indication: PRODUCT USED FOR UNKNOWN INDICATION
     Dosage: UNK

REACTIONS (7)
  - Night blindness [Not Recovered/Not Resolved]
  - Diplopia [Unknown]
  - Dry eye [Not Recovered/Not Resolved]
  - Photophobia [Unknown]
  - Foreign body sensation in eyes [Unknown]
  - Keratopathy [Unknown]
  - Visual acuity reduced [Not Recovered/Not Resolved]
